FAERS Safety Report 4475759-8 (Version None)
Quarter: 2004Q4

REPORT INFORMATION
  Report Type: 
  Country: None (occurrence: None)
  Receive Date: 20041015
  Receipt Date: 20040813
  Transmission Date: 20050328
  Serious: Yes (Life-Threatening, Disabling)
  Sender: FDA-Public Use
  Company Number: US-GLAXOSMITHKLINE-A0522122A

PATIENT
  Age: 72 Year
  Sex: Female
  Weight: 43.2 kg

DRUGS (9)
  1. REQUIP [Suspect]
     Indication: PARKINSON'S DISEASE
     Route: 048
     Dates: start: 20040702, end: 20040801
  2. ZYRTEC [Concomitant]
     Dosage: 10MG PER DAY
     Route: 048
  3. SINEMET CR [Concomitant]
     Route: 048
  4. MYSOLINE [Concomitant]
     Route: 048
  5. LEXAPRO [Concomitant]
     Dosage: 10MG PER DAY
     Route: 048
  6. LORAZEPAM [Concomitant]
     Route: 048
  7. NAMENDA [Concomitant]
     Dosage: 10MG TWICE PER DAY
     Route: 048
  8. REMERON [Concomitant]
     Dosage: 30MG PER DAY
     Route: 048
  9. ARICEPT [Concomitant]
     Dosage: 10MG PER DAY
     Route: 048

REACTIONS (7)
  - ASTHENIA [None]
  - DECUBITUS ULCER [None]
  - DYSPHAGIA [None]
  - IMMOBILE [None]
  - MALNUTRITION [None]
  - SKIN DISORDER [None]
  - WEIGHT DECREASED [None]
